FAERS Safety Report 4332321-5 (Version None)
Quarter: 2004Q2

REPORT INFORMATION
  Report Type: 
  Country: None (occurrence: None)
  Receive Date: 20040401
  Receipt Date: 20040304
  Transmission Date: 20050107
  Serious: No
  Sender: FDA-Public Use
  Company Number: 7660

PATIENT
  Age: 50 Year
  Sex: Male

DRUGS (2)
  1. LEUCOVORIN CALCIUM [Suspect]
     Indication: COLON CANCER
     Dosage: 75 MG, PO
     Route: 048
     Dates: start: 20031110, end: 20040217
  2. UFT [Suspect]
     Indication: COLON CANCER
     Dosage: 500 MG, PO
     Route: 048
     Dates: start: 20031110, end: 20040217

REACTIONS (3)
  - DERMATITIS [None]
  - HAEMORRHAGE [None]
  - SKIN ULCER [None]
